FAERS Safety Report 8487529 (Version 2)
Quarter: 2013Q2

REPORT INFORMATION
  Report Type: Spontaneous
  Country: IE (occurrence: IE)
  Receive Date: 20120402
  Receipt Date: 20130507
  Transmission Date: 20140414
  Serious: Yes (Death)
  Sender: FDA-Public Use
  Company Number: IE-MERCK-1203GBR00093

PATIENT
  Sex: Male

DRUGS (1)
  1. CANCIDAS [Suspect]
     Route: 041

REACTIONS (1)
  - Respiratory disorder [Fatal]
